FAERS Safety Report 21904761 (Version 1)
Quarter: 2023Q1

REPORT INFORMATION
  Report Type: Spontaneous
  Country: IR (occurrence: IR)
  Receive Date: 20230124
  Receipt Date: 20230124
  Transmission Date: 20230417
  Serious: Yes (Hospitalization, Other)
  Sender: FDA-Public Use
  Company Number: IR-SA-2023SA016591

PATIENT
  Age: 33 Year
  Sex: Male

DRUGS (2)
  1. ZOLPIDEM TARTRATE [Suspect]
     Active Substance: ZOLPIDEM TARTRATE
     Indication: Insomnia
     Dosage: 30 MG, QD
  2. ZOLPIDEM TARTRATE [Suspect]
     Active Substance: ZOLPIDEM TARTRATE
     Dosage: 270 MG, QD

REACTIONS (8)
  - Drug abuse [Unknown]
  - Drug dependence [Unknown]
  - Central nervous system lesion [Unknown]
  - Cerebral hypoperfusion [Unknown]
  - Vascular cognitive impairment [Unknown]
  - Seizure [Unknown]
  - Gait disturbance [Unknown]
  - Confusional state [Unknown]
